FAERS Safety Report 14083282 (Version 3)
Quarter: 2017Q4

REPORT INFORMATION
  Report Type: Spontaneous
  Country: DE (occurrence: DE)
  Receive Date: 20171013
  Receipt Date: 20171201
  Transmission Date: 20180321
  Serious: Yes (Hospitalization, Other)
  Sender: FDA-Public Use
  Company Number: DE-AMGEN-DEUSP2017152565

PATIENT
  Age: 87 Year
  Sex: Male
  Weight: 69 kg

DRUGS (3)
  1. XGEVA [Suspect]
     Active Substance: DENOSUMAB
     Indication: PROSTATE CANCER METASTATIC
     Dosage: 120 MG, UNK
     Route: 058
     Dates: start: 201512, end: 201606
  2. XGEVA [Suspect]
     Active Substance: DENOSUMAB
     Indication: METASTASES TO BONE
  3. PROFACT [Concomitant]
     Active Substance: BUSERELIN ACETATE
     Indication: PROSTATE CANCER
     Dosage: UNK UNK, Q3MO
     Dates: start: 20140417, end: 20171005

REACTIONS (6)
  - Osteonecrosis of jaw [Recovering/Resolving]
  - Arachnoid cyst [Unknown]
  - Emphysema [Unknown]
  - Aortic arteriosclerosis [Unknown]
  - Urinary tract infection [Unknown]
  - Spinal osteoarthritis [Unknown]

NARRATIVE: CASE EVENT DATE: 201606
